FAERS Safety Report 5203486-8 (Version None)
Quarter: 2007Q1

REPORT INFORMATION
  Report Type: 
  Country: None (occurrence: None)
  Receive Date: 20070110
  Receipt Date: 20070103
  Transmission Date: 20070707
  Serious: Yes (Other)
  Sender: FDA-Public Use
  Company Number: US-AVENTIS-200710104US

PATIENT
  Sex: Female

DRUGS (5)
  1. LASIX [Suspect]
     Dosage: DOSE: UNK
  2. DILTIAZEM HCL [Concomitant]
     Dosage: DOSE: UNK
  3. METFORMIN HCL [Concomitant]
     Dosage: DOSE: UNK
  4. AVANDIA [Concomitant]
     Dosage: DOSE: UNK
  5. LISINOPRIL [Concomitant]
     Dosage: DOSE: UNK

REACTIONS (1)
  - CEREBROVASCULAR ACCIDENT [None]
